FAERS Safety Report 4710061-8 (Version None)
Quarter: 2005Q3

REPORT INFORMATION
  Report Type: 
  Country: None (occurrence: None)
  Receive Date: 20050706
  Receipt Date: 20050624
  Transmission Date: 20060218
  Serious: Yes (Other)
  Sender: FDA-Public Use
  Company Number: 2005092972

PATIENT
  Age: 80 Year
  Sex: Male

DRUGS (1)
  1. AMLODIPINE [Suspect]
     Indication: ILL-DEFINED DISORDER
     Dosage: 5 MG (DAILY), ORAL; 10 MG (DAILY), ORAL
     Route: 048
     Dates: start: 20031001

REACTIONS (2)
  - MACULAR DEGENERATION [None]
  - VISUAL DISTURBANCE [None]
